FAERS Safety Report 12341403 (Version 1)
Quarter: 2016Q2

REPORT INFORMATION
  Report Type: Spontaneous
  Country: FR (occurrence: FR)
  Receive Date: 20160506
  Receipt Date: 20160506
  Transmission Date: 20160815
  Serious: Yes (Other)
  Sender: FDA-Public Use
  Company Number: FR-PFIZER INC-2016241763

PATIENT
  Age: 84 Year
  Sex: Male

DRUGS (2)
  1. SOLUPRED [Concomitant]
     Active Substance: PREDNISOLONE
     Dosage: 3 DF, 1X/DAY
     Dates: start: 201604
  2. ORELOX [Suspect]
     Active Substance: CEFPODOXIME
     Dosage: 2 DF, DAILY
     Route: 048
     Dates: start: 201604, end: 20160425

REACTIONS (4)
  - Swelling face [Recovered/Resolved]
  - Erythema [Recovered/Resolved]
  - Drug hypersensitivity [Recovered/Resolved]
  - Loss of consciousness [Recovered/Resolved]

NARRATIVE: CASE EVENT DATE: 20160424
